FAERS Safety Report 7226407-5 (Version None)
Quarter: 2011Q1

REPORT INFORMATION
  Report Type: 
  Country: None (occurrence: None)
  Receive Date: 20110110
  Receipt Date: 20110110
  Transmission Date: 20110831
  Serious: Yes (Life-Threatening)
  Sender: FDA-Public Use
  Company Number: None

PATIENT
  Age: 28 Year
  Sex: Female
  Weight: 113.3993 kg

DRUGS (1)
  1. CHANTIX [Suspect]
     Indication: SMOKING CESSATION THERAPY
     Dosage: 1 PILL DAY AND NIGHT PO
     Route: 048
     Dates: start: 20101225, end: 20101231

REACTIONS (7)
  - SUICIDAL IDEATION [None]
  - EXCESSIVE EYE BLINKING [None]
  - HOMICIDAL IDEATION [None]
  - MOOD ALTERED [None]
  - AGGRESSION [None]
  - ANXIETY [None]
  - THINKING ABNORMAL [None]
